FAERS Safety Report 5194336-7 (Version None)
Quarter: 2006Q4

REPORT INFORMATION
  Report Type: 
  Country: None (occurrence: None)
  Receive Date: 20061228
  Receipt Date: 20061010
  Transmission Date: 20070319
  Serious: Yes (Hospitalization)
  Sender: FDA-Public Use
  Company Number: JP-SHR-JP-2006-030239

PATIENT
  Age: 54 Year
  Sex: Male

DRUGS (8)
  1. BETAFERON [Suspect]
     Indication: MULTIPLE SCLEROSIS
     Dosage: 8 MIU, EVERY 2D
     Route: 058
     Dates: start: 20051001
  2. PREDONINE [Suspect]
     Indication: MULTIPLE SCLEROSIS
     Dosage: 10 MG, 1X/DAY
     Route: 048
     Dates: start: 20030501
  3. IMURAN [Concomitant]
     Indication: MULTIPLE SCLEROSIS
     Dosage: 50 MG, 1X/DAY
     Route: 048
  4. PLETAL [Concomitant]
     Indication: CEREBRAL INFARCTION
     Dosage: 100 MG, 2X/DAY
     Route: 048
  5. TOLEDOMIN [Concomitant]
     Indication: INSOMNIA
     Dosage: 25 MG, 2X/DAY
     Route: 048
  6. TEGRETOL [Concomitant]
  7. GASTER D [Concomitant]
     Dosage: 20 MG, 2X/DAY
     Route: 048
  8. RIVOTRIL [Concomitant]
     Dosage: .5 MG, 3X/DAY
     Route: 048

REACTIONS (1)
  - LACUNAR INFARCTION [None]
